FAERS Safety Report 15251267 (Version 1)
Quarter: 2018Q3

REPORT INFORMATION
  Report Type: Spontaneous
  Country: JP (occurrence: JP)
  Receive Date: 20180807
  Receipt Date: 20180807
  Transmission Date: 20181010
  Serious: Yes (Other)
  Sender: FDA-Public Use
  Company Number: JP-CELGENEUS-JPN-20180601710

PATIENT
  Age: 55 Year
  Sex: Male

DRUGS (1)
  1. ABRAXANE [Suspect]
     Active Substance: PACLITAXEL
     Indication: PRODUCT USED FOR UNKNOWN INDICATION
     Dosage: 193 MILLIGRAM
     Route: 058
     Dates: start: 20170418

REACTIONS (4)
  - Oedema peripheral [Recovered/Resolved]
  - Sclerema [Recovered/Resolved with Sequelae]
  - Neuropathy peripheral [Unknown]
  - Scleroderma-like reaction [Unknown]

NARRATIVE: CASE EVENT DATE: 20170627
